FAERS Safety Report 15676214 (Version 2)
Quarter: 2019Q1

REPORT INFORMATION
  Report Type: Report from Study
  Country: US (occurrence: US)
  Receive Date: 20181130
  Receipt Date: 20190215
  Transmission Date: 20190417
  Serious: Yes (Hospitalization)
  Sender: FDA-Public Use
  Company Number: US-TESAROUBC-2018-TSO2064-US

PATIENT
  Sex: Female
  Weight: 57 kg

DRUGS (3)
  1. ZEJULA [Suspect]
     Active Substance: NIRAPARIB
     Dosage: 100 MG, HS WITHOUT FOOD
     Dates: start: 201806
  2. ZEJULA [Suspect]
     Active Substance: NIRAPARIB
     Dosage: 100 MG, QPM W/O FOOD
     Dates: start: 201806
  3. ZEJULA [Suspect]
     Active Substance: NIRAPARIB
     Indication: OVARIAN CANCER
     Dosage: 300 MG, UNK
     Dates: start: 201803, end: 201805

REACTIONS (4)
  - Intestinal obstruction [Recovered/Resolved]
  - Pain in extremity [Recovering/Resolving]
  - Product dose omission [Unknown]
  - Joint swelling [Unknown]

NARRATIVE: CASE EVENT DATE: 2018
